FAERS Safety Report 10057934 (Version 1)
Quarter: 2014Q2

REPORT INFORMATION
  Report Type: Spontaneous
  Country: US (occurrence: None)
  Receive Date: 20140403
  Receipt Date: 20140403
  Transmission Date: 20141212
  Serious: Yes (Disabling)
  Sender: FDA-Public Use
  Company Number: None

PATIENT
  Age: 62 Year
  Sex: Female

DRUGS (1)
  1. LIDOCAINE PATCH [Suspect]
     Route: 062

REACTIONS (6)
  - Product packaging issue [None]
  - Device adhesion issue [None]
  - Drug ineffective [None]
  - Product quality issue [None]
  - Product substitution issue [None]
  - Device leakage [None]
